FAERS Safety Report 8696552 (Version 2)
Quarter: 2013Q4

REPORT INFORMATION
  Report Type: Spontaneous
  Country: US (occurrence: US)
  Receive Date: 20120801
  Receipt Date: 20131101
  Transmission Date: 20140711
  Serious: No
  Sender: FDA-Public Use
  Company Number: US-009507513-1207USA010980

PATIENT
  Sex: Male

DRUGS (7)
  1. ZOCOR [Suspect]
     Route: 048
  2. ANDROGEL [Suspect]
  3. COZAAR [Concomitant]
     Route: 048
  4. SYNTHROID [Concomitant]
  5. FLOMAX (MORNIFLUMATE) [Concomitant]
  6. TRENTAL [Concomitant]
  7. ASPIRIN [Concomitant]

REACTIONS (3)
  - Mobility decreased [Unknown]
  - Muscular weakness [Unknown]
  - Pruritus [Unknown]
